FAERS Safety Report 6431414-6 (Version None)
Quarter: 2009Q4

REPORT INFORMATION
  Report Type: 
  Country: None (occurrence: None)
  Receive Date: 20091106
  Receipt Date: 20091030
  Transmission Date: 20100525
  Serious: Yes (Death, Hospitalization)
  Sender: FDA-Public Use
  Company Number: PHHY2009JP45852

PATIENT
  Age: 75 Year
  Sex: Male

DRUGS (1)
  1. GLEEVEC [Suspect]
     Indication: PLEURAL NEOPLASM
     Dosage: UNK
     Route: 048
     Dates: start: 20080922, end: 20080930

REACTIONS (3)
  - DYSPNOEA [None]
  - LUNG INFILTRATION [None]
  - PNEUMONITIS [None]
